FAERS Safety Report 9122547 (Version 2)
Quarter: 2013Q1

REPORT INFORMATION
  Report Type: Spontaneous
  Country: US (occurrence: US)
  Receive Date: 20130227
  Receipt Date: 20130314
  Transmission Date: 20140127
  Serious: Yes (Other)
  Sender: FDA-Public Use
  Company Number: US-PFIZER INC-2013065066

PATIENT
  Sex: Female

DRUGS (4)
  1. GLIPIZIDE [Suspect]
     Dosage: UNK
  2. OMEPRAZOLE [Suspect]
     Dosage: UNK
  3. JANUVIA [Suspect]
     Dosage: UNK
  4. STARLIX [Suspect]
     Dosage: 60 MG, UNK

REACTIONS (4)
  - Blood glucose increased [Unknown]
  - Oedema mouth [Unknown]
  - Lip swelling [Unknown]
  - Blood glucose abnormal [Unknown]
